FAERS Safety Report 9655582 (Version 2)
Quarter: 2013Q4

REPORT INFORMATION
  Report Type: Spontaneous
  Country: CA (occurrence: CA)
  Receive Date: 20131029
  Receipt Date: 20131103
  Transmission Date: 20140711
  Serious: Yes (Other)
  Sender: FDA-Public Use
  Company Number: CA-JNJFOC-20131001942

PATIENT
  Age: 23 Year
  Sex: Female
  Weight: 59.88 kg

DRUGS (4)
  1. BENYLIN 1 ALL-IN-ONE COLD AND FLU DAY [Suspect]
     Indication: NASOPHARYNGITIS
     Route: 048
     Dates: start: 20131001, end: 20131001
  2. BENYLIN 1 ALL-IN-ONE COLD AND FLU DAY [Suspect]
     Indication: INFLUENZA
     Route: 048
     Dates: start: 20131001, end: 20131001
  3. BENYLIN [Suspect]
     Indication: NASOPHARYNGITIS
     Dosage: 1 DURING THE DAY AND 2 DURING THE NIGHT
     Route: 048
     Dates: start: 20131001, end: 20131001
  4. BENYLIN [Suspect]
     Indication: INFLUENZA
     Dosage: 1 DURING THE DAY AND 2 DURING THE NIGHT
     Route: 048
     Dates: start: 20131001, end: 20131001

REACTIONS (3)
  - Hallucination [Recovered/Resolved]
  - Nightmare [Recovered/Resolved]
  - Expired drug administered [Unknown]
